FAERS Safety Report 8318548-6 (Version None)
Quarter: 2012Q2

REPORT INFORMATION
  Report Type: 
  Country: None (occurrence: None)
  Receive Date: 20120427
  Receipt Date: 20120419
  Transmission Date: 20120825
  Serious: No
  Sender: FDA-Public Use
  Company Number: US-ELI_LILLY_AND_COMPANY-US201204007675

PATIENT
  Age: 53 Year
  Sex: Male

DRUGS (2)
  1. SPECIFIC ANTIRHEUMATIC AGENTS [Concomitant]
     Indication: RHEUMATOID ARTHRITIS
     Dosage: UNK, UNKNOWN
  2. CYMBALTA [Suspect]
     Dosage: 60 MG, UNKNOWN
     Dates: start: 20120101

REACTIONS (1)
  - HEPATIC ENZYME INCREASED [None]
